FAERS Safety Report 25044352 (Version 2)
Quarter: 2025Q2

REPORT INFORMATION
  Report Type: Spontaneous
  Country: JP (occurrence: JP)
  Receive Date: 20250306
  Receipt Date: 20250403
  Transmission Date: 20250717
  Serious: Yes (Other)
  Sender: ALEXION PHARMACEUTICALS
  Company Number: JP-ASTRAZENECA-250020450_032620_P_1

PATIENT
  Age: 87 Year
  Weight: 37 kg

DRUGS (5)
  1. FASENRA [Suspect]
     Active Substance: BENRALIZUMAB
     Indication: Asthma
  2. SALMETEROL [Concomitant]
     Active Substance: SALMETEROL
  3. TIOTROPIUM [Concomitant]
     Active Substance: TIOTROPIUM
  4. PRANLUKAST HEMIHYDRATE [Concomitant]
     Active Substance: PRANLUKAST HEMIHYDRATE
  5. THEOPHYLLINE [Concomitant]
     Active Substance: THEOPHYLLINE

REACTIONS (3)
  - Bronchiectasis [Unknown]
  - Bronchial secretion retention [Unknown]
  - Drug ineffective [Unknown]
